FAERS Safety Report 16241900 (Version 4)
Quarter: 2019Q2

REPORT INFORMATION
  Report Type: Spontaneous
  Country: JP (occurrence: JP)
  Receive Date: 20190426
  Receipt Date: 20190619
  Transmission Date: 20190711
  Serious: Yes (Hospitalization, Other)
  Sender: FDA-Public Use
  Company Number: JP-ASTELLAS-2019JP006043

PATIENT
  Age: 79 Year
  Sex: Female
  Weight: 53 kg

DRUGS (39)
  1. LEVOFLOXACIN. [Concomitant]
     Active Substance: LEVOFLOXACIN
     Dosage: UNK UNK, UNKNOWN FREQ.
     Route: 048
     Dates: start: 20181221, end: 20181226
  2. FLUCONAZOLE. [Concomitant]
     Active Substance: FLUCONAZOLE
     Indication: INFECTION PROPHYLAXIS
     Dosage: UNK UNK, UNKNOWN FREQ.
     Route: 048
     Dates: start: 20180925, end: 20180927
  3. FLUCONAZOLE. [Concomitant]
     Active Substance: FLUCONAZOLE
     Route: 048
     Dates: start: 20190117, end: 20190404
  4. ANTEBATE [Concomitant]
     Active Substance: BETAMETHASONE DIPROPIONATE
     Indication: RASH MACULO-PAPULAR
     Dosage: UNK UNK, UNKNOWN FREQ.
     Route: 061
     Dates: start: 20180928, end: 20181008
  5. POLARAMINE [Concomitant]
     Active Substance: DEXCHLORPHENIRAMINE MALEATE
     Indication: PROPHYLAXIS
     Dosage: UNK UNK, UNKNOWN FREQ.
     Route: 042
     Dates: start: 20181002, end: 20181009
  6. POLARAMINE [Concomitant]
     Active Substance: DEXCHLORPHENIRAMINE MALEATE
     Route: 042
     Dates: start: 20190313, end: 20190313
  7. METHYCOBAL [Concomitant]
     Active Substance: METHYLCOBALAMIN
     Indication: NEUROPATHY PERIPHERAL
     Route: 048
     Dates: start: 20190308
  8. MAGNESIUM OXIDE. [Concomitant]
     Active Substance: MAGNESIUM OXIDE
     Indication: CONSTIPATION PROPHYLAXIS
     Dosage: UNK UNK, UNKNOWN FREQ.
     Route: 048
     Dates: start: 20180919
  9. CEFEPIME [Concomitant]
     Active Substance: CEFEPIME HYDROCHLORIDE
     Indication: BACTERAEMIA
     Route: 042
     Dates: start: 20190313, end: 20190321
  10. CEFEPIME [Concomitant]
     Active Substance: CEFEPIME HYDROCHLORIDE
     Indication: FEBRILE NEUTROPENIA
  11. CALONAL [Concomitant]
     Active Substance: ACETAMINOPHEN
     Indication: FEBRILE NEUTROPENIA
     Dosage: UNK UNK, UNKNOWN FREQ.
     Route: 048
     Dates: start: 20180927, end: 20180927
  12. FRANDOL [Concomitant]
     Active Substance: ISOSORBIDE DINITRATE
     Indication: HYPERTENSION
     Dosage: UNK UNK, UNKNOWN FREQ.
     Route: 062
     Dates: start: 20180924
  13. CEFEPIME [Concomitant]
     Active Substance: CEFEPIME HYDROCHLORIDE
     Indication: INFECTION PROPHYLAXIS
     Dosage: UNK UNK, UNKNOWN FREQ.
     Route: 042
     Dates: start: 20180925, end: 20181001
  14. CALONAL [Concomitant]
     Active Substance: ACETAMINOPHEN
     Indication: PYREXIA
     Dosage: UNK UNK, UNKNOWN FREQ.
     Route: 048
     Dates: start: 20190314
  15. ANTEBATE [Concomitant]
     Active Substance: BETAMETHASONE DIPROPIONATE
     Indication: ERYTHEMA
     Dosage: APPROPRIATE AMOUNT, AS NEEDED
     Route: 061
     Dates: start: 20181108
  16. ISOSORBIDE MONONITRATE. [Concomitant]
     Active Substance: ISOSORBIDE MONONITRATE
     Indication: HYPERTENSION
     Route: 050
     Dates: start: 20190306
  17. DALACIN                            /00166002/ [Concomitant]
     Active Substance: CLINDAMYCIN HYDROCHLORIDE
     Indication: FEBRILE NEUTROPENIA
     Dosage: UNK UNK, UNKNOWN FREQ.
     Route: 048
     Dates: start: 20190320, end: 20190325
  18. PROCHLORPERAZINE MESILATE [Concomitant]
     Active Substance: PROCHLORPERAZINE DIMETHANESULFONATE
     Indication: NAUSEA
     Dosage: UNK UNK, UNKNOWN FREQ.
     Route: 042
     Dates: start: 20190328, end: 20190329
  19. DAPTOMYCIN. [Concomitant]
     Active Substance: DAPTOMYCIN
     Indication: FEBRILE NEUTROPENIA
     Dosage: UNK UNK, UNKNOWN FREQ.
     Route: 042
     Dates: start: 20190328, end: 20190409
  20. XOSPATA [Suspect]
     Active Substance: GILTERITINIB
     Indication: ACUTE MYELOID LEUKAEMIA
     Route: 048
     Dates: start: 20190314, end: 20190314
  21. LEVOFLOXACIN. [Concomitant]
     Active Substance: LEVOFLOXACIN
     Indication: INFECTION PROPHYLAXIS
     Dosage: UNK UNK, UNKNOWN FREQ.
     Route: 048
     Dates: start: 20180918, end: 20180925
  22. LEVOFLOXACIN. [Concomitant]
     Active Substance: LEVOFLOXACIN
     Route: 048
     Dates: start: 20190117, end: 20190313
  23. GENTAMICIN SULFATE. [Concomitant]
     Active Substance: GENTAMICIN SULFATE
     Indication: PROPHYLAXIS
     Dosage: UNK UNK, UNKNOWN FREQ.
     Route: 061
     Dates: start: 2015
  24. CALONAL [Concomitant]
     Active Substance: ACETAMINOPHEN
     Indication: NEUTROPHIL COUNT DECREASED
     Dosage: UNK UNK, UNKNOWN FREQ.
     Route: 048
     Dates: start: 20180925, end: 20180925
  25. CALONAL [Concomitant]
     Active Substance: ACETAMINOPHEN
     Indication: NASOPHARYNGITIS
     Dosage: UNK UNK, UNKNOWN FREQ.
     Route: 048
     Dates: start: 20181213, end: 20190116
  26. ANTEBATE [Concomitant]
     Active Substance: BETAMETHASONE DIPROPIONATE
     Indication: PRURITUS
     Dosage: UNK UNK, UNKNOWN FREQ.
     Route: 061
     Dates: start: 20181020, end: 20181031
  27. HIRUDOID                           /00723701/ [Concomitant]
     Active Substance: PENTOSAN POLYSULFATE SODIUM
     Indication: PRURITUS
     Dosage: APPROPRIATE AMOUNT, AS NEEDED
     Route: 061
     Dates: start: 20181114
  28. METOCLOPRAMIDE                     /00041902/ [Concomitant]
     Active Substance: METOCLOPRAMIDE HYDROCHLORIDE
     Indication: NAUSEA
     Dosage: UNK UNK, UNKNOWN FREQ.
     Route: 042
     Dates: start: 20190328
  29. HACHIAZULE                         /00317302/ [Concomitant]
     Indication: PROPHYLAXIS
     Dosage: UNK UNK, UNKNOWN FREQ.
     Route: 061
     Dates: start: 20180913
  30. CALONAL [Concomitant]
     Active Substance: ACETAMINOPHEN
     Indication: HEADACHE
     Dosage: UNK UNK, UNKNOWN FREQ.
     Route: 048
     Dates: start: 20181104, end: 20181104
  31. MEROPENEM                          /01250502/ [Concomitant]
     Active Substance: MEROPENEM
     Indication: FEBRILE NEUTROPENIA
     Dosage: UNK UNK, UNKNOWN FREQ.
     Route: 042
     Dates: start: 20190322, end: 20190404
  32. SOLU-CORTEF [Concomitant]
     Active Substance: HYDROCORTISONE SODIUM SUCCINATE
     Indication: TRANSFUSION REACTION
     Dosage: UNK UNK, UNKNOWN FREQ.
     Route: 042
     Dates: start: 20190322, end: 20190322
  33. POLARAMINE [Concomitant]
     Active Substance: DEXCHLORPHENIRAMINE MALEATE
     Dosage: UNK UNK, UNKNOWN FREQ.
     Route: 042
     Dates: start: 20181015
  34. RUPAFIN [Concomitant]
     Active Substance: RUPATADINE FUMARATE
     Indication: ERYTHEMA
     Route: 048
     Dates: start: 20181121
  35. RUPAFIN [Concomitant]
     Active Substance: RUPATADINE FUMARATE
     Indication: PRURITUS
  36. RENIVACE [Concomitant]
     Active Substance: ENALAPRIL
     Indication: CARDIOMYOPATHY
     Route: 048
     Dates: start: 201807
  37. LEVOFLOXACIN. [Concomitant]
     Active Substance: LEVOFLOXACIN
     Indication: NASOPHARYNGITIS
     Dosage: UNK UNK, UNKNOWN FREQ.
     Route: 048
     Dates: start: 20181002, end: 20181025
  38. POLAPREZINC [Concomitant]
     Active Substance: POLAPREZINC
     Indication: DYSGEUSIA
     Route: 048
     Dates: start: 20181121
  39. FUROSEMIDE. [Concomitant]
     Active Substance: FUROSEMIDE
     Indication: CARDIAC FAILURE
     Dosage: UNK UNK, UNKNOWN FREQ.
     Route: 042
     Dates: start: 20190328

REACTIONS (7)
  - Erythema [Recovered/Resolved]
  - Abdominal tenderness [Recovered/Resolved]
  - Febrile neutropenia [Not Recovered/Not Resolved]
  - Cardiac failure chronic [Not Recovered/Not Resolved]
  - Transfusion reaction [Recovered/Resolved]
  - Nausea [Not Recovered/Not Resolved]
  - Vomiting [Not Recovered/Not Resolved]

NARRATIVE: CASE EVENT DATE: 20190318
